FAERS Safety Report 16462723 (Version 1)
Quarter: 2019Q2

REPORT INFORMATION
  Report Type: Spontaneous
  Country: US (occurrence: US)
  Receive Date: 20190621
  Receipt Date: 20190621
  Transmission Date: 20190711
  Serious: Yes (Life-Threatening, Hospitalization, Other)
  Sender: FDA-Public Use
  Company Number: US-GLENMARK PHARMACEUTICALS-2019GMK041786

PATIENT
  Age: 16 Year
  Sex: Female

DRUGS (2)
  1. MICONAZOLE. [Concomitant]
     Active Substance: MICONAZOLE
     Indication: PRODUCT USED FOR UNKNOWN INDICATION
     Dosage: UNK
     Route: 061
  2. SULFAMETHOXAZOLE/TRIMETHOPRIM [Suspect]
     Active Substance: SULFAMETHOXAZOLE\TRIMETHOPRIM
     Indication: ACNE
     Dosage: UNK
     Route: 065

REACTIONS (7)
  - Pneumomediastinum [Unknown]
  - Pneumothorax [Unknown]
  - Pleural effusion [Unknown]
  - Acute respiratory distress syndrome [Recovering/Resolving]
  - Renal failure [Recovered/Resolved]
  - Acute respiratory failure [Recovered/Resolved]
  - Multiple organ dysfunction syndrome [Recovered/Resolved]
